FAERS Safety Report 11479740 (Version 2)
Quarter: 2015Q3

REPORT INFORMATION
  Report Type: Spontaneous
  Country: IE (occurrence: IE)
  Receive Date: 20150909
  Receipt Date: 20150910
  Transmission Date: 20151125
  Serious: Yes (Other)
  Sender: FDA-Public Use
  Company Number: IE-REGENERON PHARMACEUTICALS, INC.-2015-11629

PATIENT

DRUGS (3)
  1. EYLEA [Suspect]
     Active Substance: AFLIBERCEPT
     Dosage: 2 MG, ONE SIDE INJECTION
     Route: 031
     Dates: start: 20150623
  2. EYLEA [Suspect]
     Active Substance: AFLIBERCEPT
     Dosage: SEVERAL OTHER INJECTIONS IN THE PAST
  3. EYLEA [Suspect]
     Active Substance: AFLIBERCEPT
     Indication: PRODUCT USED FOR UNKNOWN INDICATION
     Dosage: SEVERAL OTHER INJECTIONS IN THE PAST

REACTIONS (3)
  - Facial neuralgia [Unknown]
  - Blindness transient [Unknown]
  - Pain [Unknown]

NARRATIVE: CASE EVENT DATE: 20150623
